FAERS Safety Report 5326582-3 (Version None)
Quarter: 2007Q2

REPORT INFORMATION
  Report Type: 
  Country: None (occurrence: None)
  Receive Date: 20070516
  Receipt Date: 20070504
  Transmission Date: 20071010
  Serious: Yes (Other)
  Sender: FDA-Public Use
  Company Number: US-PFIZER INC-2005153620

PATIENT
  Sex: Male
  Weight: 108.9 kg

DRUGS (1)
  1. VIAGRA [Suspect]
     Indication: ERECTILE DYSFUNCTION
     Dates: start: 19990920, end: 20040615

REACTIONS (21)
  - BLINDNESS [None]
  - BLINDNESS UNILATERAL [None]
  - EYE DISORDER [None]
  - EYE PAIN [None]
  - FACIAL PAIN [None]
  - FEELING HOT [None]
  - FLUSHING [None]
  - HAEMOGLOBIN DECREASED [None]
  - HEART RATE INCREASED [None]
  - HYPOAESTHESIA FACIAL [None]
  - HYPOTENSION [None]
  - OCULAR HYPERAEMIA [None]
  - OPTIC ATROPHY [None]
  - OPTIC ISCHAEMIC NEUROPATHY [None]
  - PAPILLOEDEMA [None]
  - PUPILLARY REFLEX IMPAIRED [None]
  - SLEEP STUDY ABNORMAL [None]
  - TRIGEMINAL NERVE DISORDER [None]
  - VISION BLURRED [None]
  - VISUAL ACUITY REDUCED [None]
  - VISUAL FIELD DEFECT [None]
